FAERS Safety Report 5551718-9 (Version None)
Quarter: 2007Q4

REPORT INFORMATION
  Report Type: 
  Country: None (occurrence: None)
  Receive Date: 20071212
  Receipt Date: 20071207
  Transmission Date: 20080405
  Serious: Yes (Hospitalization)
  Sender: FDA-Public Use
  Company Number: US-GILEAD-2007-0014569

PATIENT
  Sex: Male

DRUGS (1)
  1. LETAIRIS [Suspect]

REACTIONS (1)
  - PNEUMONIA [None]
